FAERS Safety Report 9083498 (Version 1)
Quarter: 2013Q1

REPORT INFORMATION
  Report Type: Report from Study
  Country: US (occurrence: US)
  Receive Date: 20130130
  Receipt Date: 20130130
  Transmission Date: 20140127
  Serious: Yes (Other)
  Sender: FDA-Public Use
  Company Number: US-ABBOTT-13P-163-1039279-00

PATIENT
  Sex: Female
  Weight: 93.07 kg

DRUGS (6)
  1. HUMIRA [Suspect]
     Indication: RHEUMATOID ARTHRITIS
     Route: 058
     Dates: start: 2003, end: 2010
  2. CORTISONE [Suspect]
     Indication: RHEUMATOID ARTHRITIS
  3. OVER-THE-COUNTER-MEDICATION [Concomitant]
     Indication: OSTEOARTHRITIS
  4. FOLIC ACID [Concomitant]
     Indication: RHEUMATOID ARTHRITIS
  5. MULTIVITAMIN [Concomitant]
     Indication: PRODUCT USED FOR UNKNOWN INDICATION
  6. ARAVA [Concomitant]
     Indication: RHEUMATOID ARTHRITIS

REACTIONS (7)
  - Arthralgia [Recovered/Resolved]
  - Venous injury [Recovered/Resolved]
  - Staphylococcal infection [Recovered/Resolved]
  - Rheumatoid arthritis [Not Recovered/Not Resolved]
  - Wrong technique in drug usage process [Recovered/Resolved]
  - Arthralgia [Unknown]
  - Osteoarthritis [Unknown]
